FAERS Safety Report 4317349-3 (Version None)
Quarter: 2004Q1

REPORT INFORMATION
  Report Type: 
  Country: None (occurrence: None)
  Receive Date: 20040305
  Receipt Date: 20040116
  Transmission Date: 20041129
  Serious: No
  Sender: FDA-Public Use
  Company Number: US-SHR-03-015499

PATIENT
  Sex: Female

DRUGS (3)
  1. CAMPATH [Suspect]
     Indication: T-CELL PROLYMPHOCYTIC LEUKAEMIA
     Dosage: 3/10/30 MG, SUBCUTANEOUS; 30 MG, 3X/WEEK, SUBCUTANEOUS
     Route: 058
     Dates: start: 20030915, end: 20030922
  2. CAMPATH [Suspect]
     Indication: T-CELL PROLYMPHOCYTIC LEUKAEMIA
     Dosage: 3/10/30 MG, SUBCUTANEOUS; 30 MG, 3X/WEEK, SUBCUTANEOUS
     Route: 058
     Dates: start: 20030922
  3. ALLOPURINOL [Concomitant]

REACTIONS (4)
  - FLUID RETENTION [None]
  - HYPOTENSION [None]
  - OEDEMA [None]
  - OLIGURIA [None]
